FAERS Safety Report 7909828-4 (Version None)
Quarter: 2011Q4

REPORT INFORMATION
  Report Type: 
  Country: None (occurrence: None)
  Receive Date: 20111111
  Receipt Date: 20111102
  Transmission Date: 20120403
  Serious: Yes (Hospitalization)
  Sender: FDA-Public Use
  Company Number: GB-MERCK-1111GBR00017

PATIENT
  Age: 75 Year
  Sex: Male

DRUGS (7)
  1. ASPIRIN [Concomitant]
     Route: 065
  2. ATORVASTATIN [Suspect]
     Route: 065
  3. GLICLAZIDE [Concomitant]
     Route: 065
  4. JANUVIA [Suspect]
     Route: 048
  5. RAMIPRIL [Concomitant]
     Route: 065
  6. METFORMIN [Concomitant]
     Route: 065
  7. PIOGLITAZONE HYDROCHLORIDE [Concomitant]
     Route: 065

REACTIONS (2)
  - RHABDOMYOLYSIS [None]
  - DRUG INTERACTION [None]
